FAERS Safety Report 4826529-X (Version None)
Quarter: 2005Q4

REPORT INFORMATION
  Report Type: 
  Country: None (occurrence: None)
  Receive Date: 20051111
  Receipt Date: 20051101
  Transmission Date: 20060501
  Serious: Yes (Hospitalization)
  Sender: FDA-Public Use
  Company Number: JP-MERCK-0511USA00743

PATIENT
  Age: 72 Year
  Sex: Male

DRUGS (8)
  1. PEPCID [Suspect]
     Route: 048
  2. PEPCID [Suspect]
     Route: 051
  3. DIGOXIN [Concomitant]
     Route: 065
  4. MEXILETINE HYDROCHLORIDE [Concomitant]
     Route: 065
  5. CANRENOATE POTASSIUM [Concomitant]
     Route: 065
  6. THEOPHYLLINE [Concomitant]
     Route: 065
  7. ZALTOPROFEN [Suspect]
     Route: 065
  8. LIMAPROST ALFADEX [Suspect]
     Route: 065

REACTIONS (6)
  - DIFFICULTY IN WALKING [None]
  - GASTRIC ULCER [None]
  - GASTRITIS ATROPHIC [None]
  - HELICOBACTER PYLORI IDENTIFICATION TEST POSITIVE [None]
  - PAIN IN EXTREMITY [None]
  - SHOCK [None]
